FAERS Safety Report 4629487-6 (Version None)
Quarter: 2005Q2

REPORT INFORMATION
  Report Type: 
  Country: None (occurrence: None)
  Receive Date: 20050405
  Receipt Date: 20050320
  Transmission Date: 20051028
  Serious: Yes (Other)
  Sender: FDA-Public Use
  Company Number: 2005BI002410

PATIENT

DRUGS (1)
  1. AVONEX [Suspect]
     Indication: MULTIPLE SCLEROSIS
     Dosage: 30 UG; QW; IM
     Route: 030
     Dates: start: 19980101

REACTIONS (4)
  - DECREASED ACTIVITY [None]
  - DIABETES MELLITUS INSULIN-DEPENDENT [None]
  - MENTAL DISORDER [None]
  - UNEVALUABLE EVENT [None]
